FAERS Safety Report 20772741 (Version 2)
Quarter: 2022Q2

REPORT INFORMATION
  Report Type: Spontaneous
  Country: JP (occurrence: JP)
  Receive Date: 20220502
  Receipt Date: 20220516
  Transmission Date: 20220721
  Serious: Yes (Hospitalization)
  Sender: FDA-Public Use
  Company Number: JP-NOVARTISPH-NVSJ2022JP089396

PATIENT
  Age: 90 Year
  Sex: Male

DRUGS (2)
  1. INDACATEROL [Suspect]
     Active Substance: INDACATEROL
     Indication: Product used for unknown indication
     Dosage: 1 DOSAGE FORM
     Route: 055
  2. INDACATEROL [Suspect]
     Active Substance: INDACATEROL
     Dosage: 1 DOSAGE FORM
     Route: 048

REACTIONS (2)
  - Cardiac failure chronic [Unknown]
  - Incorrect route of product administration [Unknown]
